FAERS Safety Report 5954898-6 (Version None)
Quarter: 2008Q4

REPORT INFORMATION
  Report Type: 
  Country: None (occurrence: None)
  Receive Date: 20081117
  Receipt Date: 20081107
  Transmission Date: 20090506
  Serious: Yes (Hospitalization)
  Sender: FDA-Public Use
  Company Number: US-KINGPHARMUSA00001-K200801278

PATIENT
  Age: 39 Year
  Sex: Female
  Weight: 66.213 kg

DRUGS (2)
  1. SKELAXIN [Suspect]
     Indication: ROAD TRAFFIC ACCIDENT
     Dosage: UNK
     Route: 048
     Dates: start: 20061107
  2. SKELAXIN [Suspect]
     Dosage: UNK
     Route: 048
     Dates: start: 20061205, end: 20061205

REACTIONS (7)
  - ARTHRALGIA [None]
  - DIZZINESS [None]
  - FATIGUE [None]
  - HYPERSENSITIVITY [None]
  - HYPOTENSION [None]
  - NAUSEA [None]
  - PYREXIA [None]
